FAERS Safety Report 20415793 (Version 1)
Quarter: 2022Q1

REPORT INFORMATION
  Report Type: Report from Study
  Country: US (occurrence: US)
  Receive Date: 20220202
  Receipt Date: 20220202
  Transmission Date: 20220423
  Serious: Yes (Hospitalization, Other)
  Sender: FDA-Public Use
  Company Number: US-BAYER-2022A000042

PATIENT
  Age: 62 Year
  Sex: Female

DRUGS (4)
  1. STIVARGA [Suspect]
     Active Substance: REGORAFENIB
     Indication: Colon cancer
     Dosage: 120 MG, QD
     Dates: start: 20211208, end: 20211220
  2. STIVARGA [Suspect]
     Active Substance: REGORAFENIB
     Indication: Colon cancer
     Dosage: 80 MG, QD
     Dates: start: 20211222, end: 20211222
  3. STIVARGA [Suspect]
     Active Substance: REGORAFENIB
     Indication: Colon cancer
     Dosage: 40 MG, QD
     Dates: start: 20211223, end: 20211228
  4. MORPHINE [Concomitant]
     Active Substance: MORPHINE
     Indication: Pain

REACTIONS (18)
  - Mobility decreased [None]
  - Hallucination [None]
  - Dehydration [None]
  - Asthenia [None]
  - Abdominal distension [None]
  - Abdominal discomfort [None]
  - Musculoskeletal discomfort [None]
  - Renal haematoma [None]
  - Decreased activity [Recovering/Resolving]
  - Fatigue [Recovering/Resolving]
  - Abdominal distension [Recovering/Resolving]
  - Abdominal tenderness [Recovering/Resolving]
  - Diarrhoea [Recovering/Resolving]
  - Constipation [Recovering/Resolving]
  - Vomiting [Recovering/Resolving]
  - Back pain [Recovering/Resolving]
  - Fatigue [None]
  - Off label use [Not Recovered/Not Resolved]

NARRATIVE: CASE EVENT DATE: 20211201
